FAERS Safety Report 8343249-8 (Version None)
Quarter: 2012Q2

REPORT INFORMATION
  Report Type: 
  Country: None (occurrence: None)
  Receive Date: 20120503
  Receipt Date: 20120503
  Transmission Date: 20120825
  Serious: Yes (Other)
  Sender: FDA-Public Use
  Company Number: None

PATIENT
  Age: 60 Year
  Sex: Female

DRUGS (1)
  1. ZETIA [Suspect]
     Dosage: 1 TABLET DAILY BY MOUTH
     Route: 048
     Dates: start: 20120301, end: 20120317

REACTIONS (1)
  - SWOLLEN TONGUE [None]
